FAERS Safety Report 17733566 (Version 1)
Quarter: 2020Q2

REPORT INFORMATION
  Report Type: Spontaneous
  Country: US (occurrence: US)
  Receive Date: 20200430
  Receipt Date: 20200430
  Transmission Date: 20200714
  Serious: Yes (Other)
  Sender: FDA-Public Use
  Company Number: None

PATIENT
  Sex: Female

DRUGS (8)
  1. VASCEPA [Concomitant]
     Active Substance: ICOSAPENT ETHYL
  2. FAMOTIDINE. [Concomitant]
     Active Substance: FAMOTIDINE
  3. PROGESTERONE. [Concomitant]
     Active Substance: PROGESTERONE
  4. PRASUGREL. [Concomitant]
     Active Substance: PRASUGREL
  5. ESTRADIOL. [Concomitant]
     Active Substance: ESTRADIOL
  6. REPATHA [Suspect]
     Active Substance: EVOLOCUMAB
     Indication: OSTEOARTHRITIS
     Dosage: ?          OTHER FREQUENCY:Q14DAYS;?
     Route: 058
     Dates: start: 20171229
  7. AMLODIPINE [Concomitant]
     Active Substance: AMLODIPINE BESYLATE
  8. CARVEDILOL. [Concomitant]
     Active Substance: CARVEDILOL

REACTIONS (1)
  - Coeliac disease [None]
